FAERS Safety Report 5625165-5 (Version None)
Quarter: 2008Q1

REPORT INFORMATION
  Report Type: 
  Country: None (occurrence: None)
  Receive Date: 20080208
  Receipt Date: 20080130
  Transmission Date: 20080703
  Serious: Yes (Hospitalization)
  Sender: FDA-Public Use
  Company Number: FABR-11190

PATIENT
  Age: 17 Year
  Sex: Male
  Weight: 55 kg

DRUGS (1)
  1. FABRAZYME [Suspect]
     Indication: FABRY'S DISEASE
     Dosage: 55 MG, Q2W, INTRAVENOUS
     Route: 042
     Dates: start: 20041113

REACTIONS (2)
  - MENINGITIS VIRAL [None]
  - NASOPHARYNGITIS [None]
